FAERS Safety Report 20463297 (Version 3)
Quarter: 2022Q2

REPORT INFORMATION
  Report Type: Spontaneous
  Country: US (occurrence: US)
  Receive Date: 20220211
  Receipt Date: 20220420
  Transmission Date: 20220720
  Serious: Yes (Hospitalization, Other)
  Sender: FDA-Public Use
  Company Number: US-COOPERSURGICAL, INC.-US-2022CPS000035

PATIENT
  Age: 35 Year
  Sex: Female
  Weight: 86.168 kg

DRUGS (1)
  1. PARAGARD T 380A [Suspect]
     Active Substance: COPPER
     Indication: Contraception
     Dosage: UNK
     Route: 015
     Dates: start: 201112, end: 20220120

REACTIONS (7)
  - Reproductive complication associated with device [Recovered/Resolved]
  - Device breakage [Recovered/Resolved]
  - Complication of device removal [Recovered/Resolved]
  - Foreign body in reproductive tract [Recovered/Resolved]
  - Embedded device [Recovered/Resolved]
  - Uterine perforation [Recovered/Resolved]
  - Device dislocation [Recovered/Resolved]

NARRATIVE: CASE EVENT DATE: 20210915
